FAERS Safety Report 20877592 (Version 1)
Quarter: 2022Q2

REPORT INFORMATION
  Report Type: Spontaneous
  Country: AU (occurrence: AU)
  Receive Date: 20220526
  Receipt Date: 20220526
  Transmission Date: 20220721
  Serious: Yes (Disabling)
  Sender: FDA-Public Use
  Company Number: AU-TEVA-2022-AU-2038873

PATIENT
  Age: 48 Year
  Sex: Female

DRUGS (16)
  1. QUETIAPINE [Suspect]
     Active Substance: QUETIAPINE
     Indication: Anxiety
     Dosage: 3 TIMES NIGHTLY
     Dates: start: 201811
  2. ESTRADIOL [Suspect]
     Active Substance: ESTRADIOL
     Indication: Menopause
     Dosage: ROTATION EVERY 3 DAYS
     Dates: start: 20191010
  3. PROMETRIUM [Suspect]
     Active Substance: PROGESTERONE
     Indication: Menopause
     Dosage: 100 MILLIGRAM DAILY;
     Route: 067
     Dates: start: 20191028
  4. CITALOPRAM [Suspect]
     Active Substance: CITALOPRAM HYDROBROMIDE
     Indication: Depression
     Dosage: 40 MILLIGRAM DAILY; NIGHTLY
     Route: 048
     Dates: start: 201811
  5. PREGABALIN [Suspect]
     Active Substance: PREGABALIN
     Indication: Meralgia paraesthetica
     Dosage: 2 TIMES NIGHTLY
     Route: 065
     Dates: start: 202107
  6. AMITRIPTYLINE [Suspect]
     Active Substance: AMITRIPTYLINE
     Indication: Migraine
     Dosage: 25 MILLIGRAM DAILY; NIGHTLY
     Dates: start: 20220120
  7. AMITRIPTYLINE [Suspect]
     Active Substance: AMITRIPTYLINE
     Indication: Pain
  8. TAPENTADOL [Suspect]
     Active Substance: TAPENTADOL
     Indication: Migraine
     Dates: start: 2018
  9. TAPENTADOL [Suspect]
     Active Substance: TAPENTADOL
     Indication: Pain
  10. GALCANEZUMAB [Suspect]
     Active Substance: GALCANEZUMAB
     Indication: Migraine
     Route: 065
     Dates: start: 202106
  11. ZOLMITRIPTAN [Suspect]
     Active Substance: ZOLMITRIPTAN
     Indication: Migraine
     Route: 065
     Dates: start: 2019
  12. ONDANSETRON [Suspect]
     Active Substance: ONDANSETRON
     Indication: Migraine
     Dates: start: 2019
  13. ONDANSETRON [Suspect]
     Active Substance: ONDANSETRON
     Indication: Irritable bowel syndrome
  14. RABEPRAZOLE [Suspect]
     Active Substance: RABEPRAZOLE
     Indication: Gastrooesophageal reflux disease
     Dosage: 1/2 DAILY, ABOUT 8 YEARS
  15. SIMETHICONE (DIMETHICONE) [Suspect]
     Active Substance: DIMETHICONE
     Indication: Irritable bowel syndrome
     Dosage: ABOUT 11 YEARS
     Route: 065
  16. BUTYLSCOPOLAMINE BROMIDE [Suspect]
     Active Substance: BUTYLSCOPOLAMINE BROMIDE
     Indication: Irritable bowel syndrome
     Dosage: ABOUT 11 YEARS
     Route: 065

REACTIONS (5)
  - Migraine [Unknown]
  - Hyperhidrosis [Unknown]
  - Hot flush [Unknown]
  - Breast tenderness [Unknown]
  - Product formulation issue [Unknown]

NARRATIVE: CASE EVENT DATE: 20220101
